FAERS Safety Report 15138669 (Version 2)
Quarter: 2018Q3

REPORT INFORMATION
  Report Type: Spontaneous
  Country: JP (occurrence: JP)
  Receive Date: 20180713
  Receipt Date: 20180809
  Transmission Date: 20181010
  Serious: No
  Sender: FDA-Public Use
  Company Number: JP-AMGEN-JPNSP2018093400

PATIENT
  Age: 66 Year
  Sex: Female

DRUGS (3)
  1. PRALIA [Suspect]
     Active Substance: DENOSUMAB
     Indication: OSTEOPOROSIS
     Dosage: 60 MG, Q6MO
     Route: 058
     Dates: start: 20160627, end: 20180105
  2. EDIROL [Concomitant]
     Active Substance: ELDECALCITOL
     Indication: OSTEOPOROSIS
     Dosage: 0.7 MUG, QD
     Route: 065
  3. ASPARA?CA [Concomitant]
     Active Substance: CALCIUM ASPARTATE
     Indication: MINERAL SUPPLEMENTATION
     Dosage: 200 MG, QD
     Route: 065

REACTIONS (1)
  - Osteitis [Unknown]
